FAERS Safety Report 13939936 (Version 1)
Quarter: 2017Q3

REPORT INFORMATION
  Report Type: Spontaneous
  Country: CA (occurrence: CA)
  Receive Date: 20170906
  Receipt Date: 20170906
  Transmission Date: 20171127
  Serious: Yes (Disabling)
  Sender: FDA-Public Use
  Company Number: CA-TEVA-803638ACC

PATIENT
  Age: 73 Year
  Sex: Female
  Weight: 58.11 kg

DRUGS (4)
  1. TUDORZA GENUAIR FOR ORAL INHALATION. 1 INHALER WITH 30 ACTUATIONS + 1 [Concomitant]
     Indication: SINUSITIS BACTERIAL
     Route: 048
  2. TEVA-MOXIFLOXACIN [Suspect]
     Active Substance: MOXIFLOXACIN
     Indication: SINUSITIS BACTERIAL
  3. ROSUVASTATIN. [Concomitant]
     Active Substance: ROSUVASTATIN
  4. ONBREZ BREEZHALER CAPSULE CONTAINING FREE-FLOWING POWDER FOR ORAL INHA [Concomitant]

REACTIONS (7)
  - Depression [Recovered/Resolved]
  - Muscular weakness [Recovered/Resolved]
  - Visual field defect [Recovered/Resolved]
  - Hypoglycaemia [Recovered/Resolved]
  - Speech disorder [Recovered/Resolved]
  - Confusional state [Recovered/Resolved]
  - Paraesthesia [Recovered/Resolved]
